FAERS Safety Report 19006816 (Version 1)
Quarter: 2021Q1

REPORT INFORMATION
  Report Type: Spontaneous
  Country: US (occurrence: US)
  Receive Date: 20210312
  Receipt Date: 20210312
  Transmission Date: 20210420
  Serious: Yes (Other)
  Sender: FDA-Public Use
  Company Number: None

PATIENT
  Age: 31 Year
  Sex: Female
  Weight: 99 kg

DRUGS (4)
  1. GABAPENTIN 300MG CAPSULE. COMMON BRAND(S): NEUROTIN [Suspect]
     Active Substance: GABAPENTIN
     Indication: BIPOLAR II DISORDER
     Route: 048
     Dates: start: 20210307, end: 20210312
  2. LAMICTAL [Concomitant]
     Active Substance: LAMOTRIGINE
  3. GABAPENTIN 300MG CAPSULE. COMMON BRAND(S): NEUROTIN [Suspect]
     Active Substance: GABAPENTIN
     Indication: GENERALISED ANXIETY DISORDER
     Route: 048
     Dates: start: 20210307, end: 20210312
  4. BUSPAR [Concomitant]
     Active Substance: BUSPIRONE HYDROCHLORIDE

REACTIONS (4)
  - Product packaging quantity issue [None]
  - Therapy interrupted [None]
  - Panic attack [None]
  - Product physical issue [None]

NARRATIVE: CASE EVENT DATE: 20210307
